FAERS Safety Report 5706368-8 (Version None)
Quarter: 2008Q2

REPORT INFORMATION
  Report Type: 
  Country: None (occurrence: None)
  Receive Date: 20080411
  Receipt Date: 20080401
  Transmission Date: 20081010
  Serious: Yes (Hospitalization)
  Sender: FDA-Public Use
  Company Number: 2008AL001981

PATIENT
  Age: 58 Year
  Sex: Female

DRUGS (7)
  1. CHILDREN'S APAP EXLIXIR (ACETAMINOPHEN) (ALPHARMA) (INFANTS' APAP DROP [Suspect]
     Indication: OSTEOARTHRITIS
     Dosage: 650 MG; QD; PO
     Route: 048
  2. PAROXETINE HCL [Concomitant]
  3. LORAZEPAM [Concomitant]
  4. ATENOLOL [Concomitant]
  5. HYDROXYZINE [Concomitant]
  6. VALERIANA [Concomitant]
  7. ALCOHOL [Concomitant]

REACTIONS (2)
  - HEPATOCELLULAR INJURY [None]
  - LIVER INJURY [None]
